FAERS Safety Report 24747383 (Version 1)
Quarter: 2024Q4

REPORT INFORMATION
  Report Type: Spontaneous
  Country: US (occurrence: US)
  Receive Date: 20241218
  Receipt Date: 20241218
  Transmission Date: 20250114
  Serious: Yes (Other)
  Sender: TORRENT PHARMA INC.
  Company Number: US-TORRENT-00013902

PATIENT
  Sex: Female

DRUGS (1)
  1. DICHLORPHENAMIDE [Suspect]
     Active Substance: DICHLORPHENAMIDE
     Indication: Paralysis
     Dosage: ONE TABLET BY MOUTH TWICE DAILY
     Route: 048

REACTIONS (4)
  - Paralysis [Unknown]
  - Pain in extremity [Unknown]
  - Muscle spasms [Unknown]
  - Product substitution issue [Unknown]
